FAERS Safety Report 12832017 (Version 1)
Quarter: 2016Q4

REPORT INFORMATION
  Report Type: Spontaneous
  Country: GB (occurrence: GB)
  Receive Date: 20161010
  Receipt Date: 20161010
  Transmission Date: 20170207
  Serious: Yes (Other)
  Sender: FDA-Public Use
  Company Number: GB-AUROBINDO-AUR-APL-2016-12163

PATIENT
  Age: 66 Year
  Sex: Female
  Weight: 50.8 kg

DRUGS (4)
  1. CO-AMOXICLAV 500 MG /125 MG FILM-COATED TABLETS [Suspect]
     Active Substance: AMOXICILLIN\CLAVULANIC ACID
     Indication: GASTROINTESTINAL INFECTION
     Dosage: 1 DF, 3 TIMES A DAY
     Route: 048
     Dates: start: 20160905
  2. FULTIUM D3 [Concomitant]
     Indication: PRODUCT USED FOR UNKNOWN INDICATION
     Dosage: 800 IU, UNK
     Route: 065
  3. LOPERAMIDE [Suspect]
     Active Substance: LOPERAMIDE
     Indication: PRODUCT USED FOR UNKNOWN INDICATION
     Dosage: 4 MG, 3 TIMES A DAY
     Route: 048
  4. LEVOTHYROXINE. [Concomitant]
     Active Substance: LEVOTHYROXINE
     Indication: PRODUCT USED FOR UNKNOWN INDICATION
     Dosage: 150 ?G, ONCE A DAY
     Route: 065

REACTIONS (3)
  - Gastrointestinal stoma output abnormal [Recovered/Resolved]
  - Night sweats [Recovered/Resolved]
  - Constipation [Recovered/Resolved]

NARRATIVE: CASE EVENT DATE: 20160905
